FAERS Safety Report 6973999 (Version 2)
Quarter: 2012Q4

REPORT INFORMATION
  Report Type: 
  Country: US (occurrence: US)
  Receive Date: 20090421
  Receipt Date: 20121205
  Transmission Date: 20130627
  Serious: Yes (Hospitalization, Other)
  Sender: FDA-Public Use
  Company Number: US-PFIZER INC-2005116590

PATIENT
  Age: 53 Year
  Sex: Female
  Weight: 73 kg

DRUGS (6)
  1. PROVERA [Suspect]
     Indication: HRT
     Dosage: UNK
     Route: 048
     Dates: start: 19940429, end: 199406
  2. PROVERA [Suspect]
     Indication: MENORRHAGIA
     Dosage: UNK
     Route: 048
     Dates: start: 19960726, end: 19961009
  3. MEDROXYPROGESTERONE ACETATE [Suspect]
     Indication: HRT
     Route: 065
  4. PREMPRO [Suspect]
     Indication: MENORRHAGIA
     Dosage: UNK
     Route: 048
     Dates: start: 19961009, end: 19970920
  5. PREMARIN [Suspect]
     Indication: MENORRHAGIA
     Dosage: UNK
     Dates: start: 19961020
  6. ESTRADIOL [Suspect]
     Indication: MENORRHAGIA
     Dosage: UNK
     Dates: start: 19961009

REACTIONS (1)
  - Breast cancer female [Unknown]
